FAERS Safety Report 9939428 (Version 1)
Quarter: 2014Q1

REPORT INFORMATION
  Report Type: Report from Study
  Country: US (occurrence: US)
  Receive Date: 20140303
  Receipt Date: 20140303
  Transmission Date: 20141002
  Serious: No
  Sender: FDA-Public Use
  Company Number: US-ABBVIE-13P-163-1037959-00

PATIENT
  Age: 52 Year
  Sex: Female
  Weight: 79.45 kg

DRUGS (10)
  1. HUMIRA [Suspect]
     Indication: RHEUMATOID ARTHRITIS
     Dates: start: 201212
  2. MOBIC [Concomitant]
     Indication: RHEUMATOID ARTHRITIS
  3. PLAQUENIL [Concomitant]
     Indication: RHEUMATOID ARTHRITIS
     Dates: start: 2012
  4. METHOTREXATE [Concomitant]
     Indication: RHEUMATOID ARTHRITIS
     Dates: start: 2012
  5. FOLATE [Concomitant]
     Indication: SUPPLEMENTATION THERAPY
  6. HYDRALAZINE [Concomitant]
     Indication: HYPERTENSION
  7. ATACAND [Concomitant]
     Indication: HYPERTENSION
  8. THYROXINE [Concomitant]
     Indication: HYPOTHYROIDISM
  9. LASIX [Concomitant]
     Indication: JOINT SWELLING
  10. POTASSIUM CHLORIDE [Concomitant]
     Indication: ELECTROLYTE SUBSTITUTION THERAPY

REACTIONS (2)
  - Influenza [Not Recovered/Not Resolved]
  - Local swelling [Not Recovered/Not Resolved]
